FAERS Safety Report 6660267-6 (Version None)
Quarter: 2010Q1

REPORT INFORMATION
  Report Type: 
  Country: None (occurrence: None)
  Receive Date: 20100331
  Receipt Date: 20100312
  Transmission Date: 20100710
  Serious: No
  Sender: FDA-Public Use
  Company Number: 2009BI039704

PATIENT
  Age: 45 Year
  Sex: Female

DRUGS (1)
  1. TYSABRI [Suspect]
     Indication: MULTIPLE SCLEROSIS
     Route: 042
     Dates: start: 20070718, end: 20091106

REACTIONS (12)
  - ASTHENIA [None]
  - CHILLS [None]
  - COUGH [None]
  - DECREASED IMMUNE RESPONSIVENESS [None]
  - DIZZINESS [None]
  - FATIGUE [None]
  - H1N1 INFLUENZA [None]
  - MALAISE [None]
  - MULTIPLE SCLEROSIS RELAPSE [None]
  - NASOPHARYNGITIS [None]
  - OROPHARYNGEAL PAIN [None]
  - PYREXIA [None]
